FAERS Safety Report 14876939 (Version 1)
Quarter: 2018Q2

REPORT INFORMATION
  Report Type: Spontaneous
  Country: KR (occurrence: KR)
  Receive Date: 20180510
  Receipt Date: 20180510
  Transmission Date: 20180711
  Serious: Yes (Other)
  Sender: FDA-Public Use
  Company Number: KR-MYLANLABS-2018M1030680

PATIENT
  Age: 50 Year
  Sex: Female

DRUGS (7)
  1. IOHEXOL [Concomitant]
     Active Substance: IOHEXOL
     Indication: PRODUCT USED FOR UNKNOWN INDICATION
     Route: 008
  2. DEXAMETHASONE. [Suspect]
     Active Substance: DEXAMETHASONE
     Indication: PRODUCT USED FOR UNKNOWN INDICATION
     Dosage: 5MG; CAUDAL BLOCK
     Route: 008
  3. ROPIVACAINE [Suspect]
     Active Substance: ROPIVACAINE
     Dosage: 5MG ;A RIGHT S1 TRANSFORAMINAL EPIDURAL INJECTION
     Route: 008
  4. LIDOCAINE. [Suspect]
     Active Substance: LIDOCAINE
     Dosage: 5MG ;A RIGHT S1 TRANSFORAMINAL EPIDURAL INJECTION
     Route: 008
  5. DEXAMETHASONE. [Suspect]
     Active Substance: DEXAMETHASONE
     Dosage: 3MG; A RIGHT S1 TRANSFORAMINAL EPIDURAL INJECTION
     Route: 008
  6. ROPIVACAINE [Suspect]
     Active Substance: ROPIVACAINE
     Indication: PRODUCT USED FOR UNKNOWN INDICATION
     Dosage: 7.5MG; CAUDAL BLOCK
     Route: 008
  7. LIDOCAINE. [Suspect]
     Active Substance: LIDOCAINE
     Indication: PRODUCT USED FOR UNKNOWN INDICATION
     Dosage: 40MG; CAUDAL BLOCK
     Route: 008

REACTIONS (1)
  - Monoplegia [Recovered/Resolved]
